FAERS Safety Report 20290776 (Version 1)
Quarter: 2022Q1

REPORT INFORMATION
  Report Type: Spontaneous
  Country: US (occurrence: US)
  Receive Date: 20220104
  Receipt Date: 20220104
  Transmission Date: 20220424
  Serious: Yes (Death, Other)
  Sender: FDA-Public Use
  Company Number: US-MYLANLABS-2022M1000699

PATIENT
  Age: 18 Year
  Sex: Male

DRUGS (4)
  1. METHOTREXATE [Suspect]
     Active Substance: METHOTREXATE
     Indication: B precursor type acute leukaemia
     Dosage: UNK
     Route: 037
  2. CYTARABINE [Suspect]
     Active Substance: CYTARABINE
     Indication: B precursor type acute leukaemia
     Dosage: UNK
     Route: 042
  3. CYTARABINE [Suspect]
     Active Substance: CYTARABINE
     Indication: B precursor type acute leukaemia
     Dosage: UNK
     Route: 037
  4. HYDROCORTISONE [Concomitant]
     Active Substance: HYDROCORTISONE
     Indication: B precursor type acute leukaemia
     Dosage: UNK
     Route: 037

REACTIONS (6)
  - Myelopathy [Fatal]
  - Toxicity to various agents [Fatal]
  - Functional gastrointestinal disorder [Fatal]
  - Bladder dysfunction [Fatal]
  - Encephalopathy [Recovered/Resolved]
  - Anhidrosis [Unknown]
